FAERS Safety Report 5348473-4 (Version None)
Quarter: 2007Q2

REPORT INFORMATION
  Report Type: 
  Country: None (occurrence: None)
  Receive Date: 20070605
  Receipt Date: 20070523
  Transmission Date: 20071010
  Serious: Yes (Disabling)
  Sender: FDA-Public Use
  Company Number: E2020-01213-SPO-AU

PATIENT
  Age: 87 Year
  Sex: Female
  Weight: 56 kg

DRUGS (7)
  1. ARICEPT [Suspect]
     Indication: DEMENTIA ALZHEIMER'S TYPE
     Dosage: SEE IMAGE
     Route: 048
     Dates: start: 20070329, end: 20070501
  2. ARICEPT [Suspect]
     Indication: DEMENTIA ALZHEIMER'S TYPE
     Dosage: SEE IMAGE
     Route: 048
     Dates: start: 20070502, end: 20070505
  3. ACTONEL (RISEDRONATE SODIUM) (RISEDRONATE SODIUM) [Concomitant]
  4. ASTRIX (ASPIRIN) (ACETYLSALICYLIC ACID) [Concomitant]
  5. ZANIDIP (LERCANIDIPINE HYDROCHLORIDE) (LERCANIDIPINE HYDROCHLORIDE) [Concomitant]
  6. XALATAN (LATANOPROST) (LATANOPROST) [Concomitant]
  7. TENOPT (TIMOLOL MALEATE) (TIMOLOL MALEATE) [Concomitant]

REACTIONS (1)
  - MANIA [None]
